FAERS Safety Report 17261992 (Version 2)
Quarter: 2020Q1

REPORT INFORMATION
  Report Type: Spontaneous
  Country: US (occurrence: US)
  Receive Date: 20200113
  Receipt Date: 20200226
  Transmission Date: 20200409
  Serious: Yes (Hospitalization)
  Sender: FDA-Public Use
  Company Number: US-JNJFOC-20200112681

PATIENT
  Age: 72 Year
  Sex: Female
  Weight: 75.82 kg

DRUGS (24)
  1. LIPITOR [Concomitant]
     Active Substance: ATORVASTATIN CALCIUM
     Indication: BLOOD CHOLESTEROL ABNORMAL
     Dosage: EVENING
  2. LASIX [Concomitant]
     Active Substance: FUROSEMIDE
  3. ESTRADIOL. [Concomitant]
     Active Substance: ESTRADIOL
  4. IBUPROFEN. [Concomitant]
     Active Substance: IBUPROFEN
     Dosage: TWO IN AM AND TWO IN PM
  5. METFORMIN [Concomitant]
     Active Substance: METFORMIN HYDROCHLORIDE
     Indication: BLOOD GLUCOSE ABNORMAL
     Dosage: ONE IN AM AND PM
  6. CYANOCOBALAMIN. [Concomitant]
     Active Substance: CYANOCOBALAMIN
  7. LOSARTAN POTASSIUM. [Concomitant]
     Active Substance: LOSARTAN POTASSIUM
  8. VALSARTAN. [Concomitant]
     Active Substance: VALSARTAN
     Indication: BLOOD CHOLESTEROL ABNORMAL
  9. SYNTHROID [Concomitant]
     Active Substance: LEVOTHYROXINE SODIUM
     Indication: THYROID DISORDER
  10. IBANDRONATE SODIUM. [Concomitant]
     Active Substance: IBANDRONATE SODIUM
     Indication: BONE DENSITY DECREASED
  11. DOXYCYCLINE HYCLATE. [Concomitant]
     Active Substance: DOXYCYCLINE HYCLATE
  12. FLUTICASONE PROPIONATE. [Concomitant]
     Active Substance: FLUTICASONE PROPIONATE
  13. RECTICARE [Concomitant]
     Active Substance: LIDOCAINE
     Indication: HAEMORRHOIDS
  14. MUPIROCIN                          /00753902/ [Concomitant]
     Indication: RASH
     Route: 061
  15. ASPERCREME                         /00021207/ [Concomitant]
     Active Substance: TROLAMINE SALICYLATE
  16. PLAVIX [Concomitant]
     Active Substance: CLOPIDOGREL BISULFATE
  17. FLUOCINOLONE [Concomitant]
     Active Substance: FLUOCINOLONE
     Dosage: EARDROPS
  18. DESOXIMETASONE. [Concomitant]
     Active Substance: DESOXIMETASONE
     Indication: PRURITUS
  19. FAMOTIDINE. [Concomitant]
     Active Substance: FAMOTIDINE
     Indication: DYSPEPSIA
     Dosage: EVENING
  20. XARELTO [Suspect]
     Active Substance: RIVAROXABAN
     Route: 048
     Dates: start: 20190705
  21. CILOSTAZOL. [Concomitant]
     Active Substance: CILOSTAZOL
     Indication: PERIPHERAL VASCULAR DISORDER
     Dosage: MORNING AND EVENING EACH ONE
  22. PANTOPRAZOLE [Concomitant]
     Active Substance: PANTOPRAZOLE
     Indication: DYSPEPSIA
     Dosage: MORNING
  23. XARELTO [Suspect]
     Active Substance: RIVAROXABAN
     Indication: PRODUCT USED FOR UNKNOWN INDICATION
     Route: 048
     Dates: end: 20190705
  24. METOPROLOL SUCCINATE. [Concomitant]
     Active Substance: METOPROLOL SUCCINATE
     Indication: BLOOD PRESSURE MEASUREMENT

REACTIONS (1)
  - Transient ischaemic attack [Recovering/Resolving]

NARRATIVE: CASE EVENT DATE: 20190701
